FAERS Safety Report 4311901-7 (Version None)
Quarter: 2004Q1

REPORT INFORMATION
  Report Type: 
  Country: None (occurrence: None)
  Receive Date: 20040305
  Receipt Date: 20031008
  Transmission Date: 20041129
  Serious: Yes (Hospitalization)
  Sender: FDA-Public Use
  Company Number: 200322016GDDC

PATIENT
  Age: 69 Year
  Sex: Female
  Weight: 168.5 kg

DRUGS (6)
  1. DOCETAXEL [Suspect]
     Route: 042
     Dates: start: 20030710, end: 20031002
  2. CARBOPLATIN [Suspect]
     Route: 042
     Dates: start: 20030710, end: 20031002
  3. ANTINEOPLASTIC AND IMMUNOSUPPRESSIVE AGENTS [Suspect]
     Route: 048
     Dates: start: 20030710, end: 20031002
  4. LANSOPRAZOLE [Concomitant]
     Route: 048
  5. VALSARTAN [Concomitant]
     Route: 048
     Dates: start: 20031002, end: 20031008
  6. FRUSEMIDE [Concomitant]
     Route: 048
     Dates: start: 20031002

REACTIONS (6)
  - ACUTE CORONARY SYNDROME [None]
  - DYSPNOEA EXERTIONAL [None]
  - ELECTROCARDIOGRAM QT PROLONGED [None]
  - HYPOTENSION [None]
  - OEDEMA PERIPHERAL [None]
  - TROPONIN I INCREASED [None]
